FAERS Safety Report 8519897-9 (Version None)
Quarter: 2012Q3

REPORT INFORMATION
  Report Type: 
  Country: None (occurrence: None)
  Receive Date: 20120719
  Receipt Date: 20120710
  Transmission Date: 20120928
  Serious: No
  Sender: FDA-Public Use
  Company Number: US-BIOGENIDEC-2012BI024693

PATIENT
  Age: 61 Year
  Sex: Female

DRUGS (4)
  1. AVONEX [Suspect]
     Route: 030
     Dates: start: 20040328
  2. AVONEX [Suspect]
     Route: 030
     Dates: start: 20120508
  3. AVONEX [Suspect]
     Route: 030
     Dates: start: 20101109, end: 20101130
  4. AVONEX [Suspect]
     Indication: MULTIPLE SCLEROSIS
     Route: 030
     Dates: start: 19990101, end: 20020902

REACTIONS (12)
  - THERMAL BURN [None]
  - BLOOD PRESSURE INCREASED [None]
  - ABDOMINAL PAIN UPPER [None]
  - INFLUENZA LIKE ILLNESS [None]
  - TRIGEMINAL NEURALGIA [None]
  - PYREXIA [None]
  - SPINAL PAIN [None]
  - DENTAL CARIES [None]
  - HAIR TEXTURE ABNORMAL [None]
  - ALOPECIA [None]
  - OPTIC NEURITIS [None]
  - INSOMNIA [None]
